FAERS Safety Report 5215219-X (Version None)
Quarter: 2007Q1

REPORT INFORMATION
  Report Type: 
  Country: None (occurrence: None)
  Receive Date: 20070117
  Receipt Date: 20061229
  Transmission Date: 20070707
  Serious: Yes (Hospitalization)
  Sender: FDA-Public Use
  Company Number: 234655

PATIENT
  Age: 71 Year
  Sex: Male
  Weight: 72 kg

DRUGS (4)
  1. AVASTIN [Suspect]
     Indication: COLON CANCER
     Dosage: 5 MG/M2, INTRAVENOUS
     Route: 042
     Dates: start: 20061018
  2. LEUCOVORIN CALCIUM [Suspect]
     Indication: COLON CANCER
     Dosage: 500 MG/M2, INTRAVENOUS
     Route: 042
     Dates: start: 20061004, end: 20061017
  3. FLUOROURACIL [Suspect]
     Indication: COLON CANCER
     Dosage: 2000 MG/M2, INTRAVENOUS
     Route: 042
     Dates: start: 20061004, end: 20061018
  4. IRINOTECAN HCL [Suspect]
     Indication: COLON CANCER
     Dosage: 80 MG/M2, INTRAVENOUS
     Route: 042
     Dates: start: 20061004, end: 20061017

REACTIONS (4)
  - CATHETER RELATED COMPLICATION [None]
  - FIBRIN D DIMER INCREASED [None]
  - OEDEMA PERIPHERAL [None]
  - THROMBOSIS [None]
